FAERS Safety Report 24532164 (Version 2)
Quarter: 2025Q3

REPORT INFORMATION
  Report Type: Spontaneous
  Country: US (occurrence: None)
  Receive Date: 20241022
  Receipt Date: 20250803
  Transmission Date: 20251020
  Serious: Yes (Life-Threatening, Hospitalization, Other)
  Sender: ALEXION PHARMACEUTICALS
  Company Number: US-ASTRAZENECA-202409GLO006211US

PATIENT
  Age: 84 Year
  Sex: Male

DRUGS (1)
  1. DURVALUMAB [Suspect]
     Active Substance: DURVALUMAB
     Indication: Lung adenocarcinoma stage III

REACTIONS (5)
  - Myasthenia gravis [Recovering/Resolving]
  - Respiratory failure [Recovering/Resolving]
  - Hallucination, visual [Recovering/Resolving]
  - Eyelid ptosis [Recovering/Resolving]
  - Diplopia [Recovering/Resolving]
